FAERS Safety Report 9192285 (Version 2)
Quarter: 2013Q2

REPORT INFORMATION
  Report Type: Spontaneous
  Country: US (occurrence: US)
  Receive Date: 20130327
  Receipt Date: 20130404
  Transmission Date: 20140414
  Serious: Yes (Other)
  Sender: FDA-Public Use
  Company Number: US-009507513-1303USA012537

PATIENT
  Age: 56 Year
  Sex: Male

DRUGS (4)
  1. PEGINTRON [Suspect]
     Indication: ILL-DEFINED DISORDER
     Dosage: 80 MICROGRAM, QW
     Route: 058
     Dates: start: 20130219, end: 20130301
  2. PEGINTRON [Suspect]
     Indication: HEPATITIS C
  3. REBETOL [Suspect]
     Dosage: UNK
  4. TELAPREVIR [Suspect]
     Dosage: UNK

REACTIONS (2)
  - Tremor [Recovered/Resolved]
  - Fatigue [Recovered/Resolved]
